FAERS Safety Report 6645978-0 (Version None)
Quarter: 2010Q1

REPORT INFORMATION
  Report Type: 
  Country: None (occurrence: None)
  Receive Date: 20100323
  Receipt Date: 20090608
  Transmission Date: 20100710
  Serious: Yes (Other)
  Sender: FDA-Public Use
  Company Number: JP-SANOFI-AVENTIS-A01200905931

PATIENT
  Age: 11 Year
  Sex: Female

DRUGS (2)
  1. CEFOTAXIME SODIUM [Suspect]
     Dates: start: 20010901, end: 20011001
  2. AMPICILLIN [Suspect]
     Dates: start: 20010901, end: 20011001

REACTIONS (1)
  - DRUG RASH WITH EOSINOPHILIA AND SYSTEMIC SYMPTOMS [None]
